FAERS Safety Report 5363311-1 (Version None)
Quarter: 2007Q2

REPORT INFORMATION
  Report Type: 
  Country: None (occurrence: None)
  Receive Date: 20070620
  Receipt Date: 20070608
  Transmission Date: 20071010
  Serious: Yes (Other)
  Sender: FDA-Public Use
  Company Number: US-JNJFOC-20070603250

PATIENT
  Age: 15 Year
  Sex: Female

DRUGS (2)
  1. TOPAMAX [Suspect]
     Indication: COMPLEX PARTIAL SEIZURES
     Route: 048
  2. LAMICTAL [Suspect]
     Indication: COMPLEX PARTIAL SEIZURES
     Route: 048

REACTIONS (5)
  - ABNORMAL BEHAVIOUR [None]
  - DRUG DISPENSING ERROR [None]
  - EDUCATIONAL PROBLEM [None]
  - SOMNOLENCE [None]
  - WEIGHT DECREASED [None]
